FAERS Safety Report 25434885 (Version 1)
Quarter: 2025Q2

REPORT INFORMATION
  Report Type: Spontaneous
  Country: AU (occurrence: AU)
  Receive Date: 20250613
  Receipt Date: 20250613
  Transmission Date: 20250716
  Serious: Yes (Other)
  Sender: ASTELLAS
  Company Number: AU-ASTELLAS-2025-AER-031738

PATIENT
  Age: 71 Year
  Sex: Male

DRUGS (3)
  1. XTANDI [Suspect]
     Active Substance: ENZALUTAMIDE
     Indication: Hormone-dependent prostate cancer
     Route: 065
     Dates: start: 202206
  2. XTANDI [Suspect]
     Active Substance: ENZALUTAMIDE
     Route: 065
  3. GOSERELIN [Concomitant]
     Active Substance: GOSERELIN
     Indication: Hormone-dependent prostate cancer
     Route: 065
     Dates: start: 202206

REACTIONS (6)
  - Neuropathy peripheral [Unknown]
  - Fatigue [Recovering/Resolving]
  - Hot flush [Unknown]
  - Sleep disorder [Unknown]
  - Muscle spasms [Unknown]
  - Nocturia [Not Recovered/Not Resolved]

NARRATIVE: CASE EVENT DATE: 20220701
